FAERS Safety Report 20820293 (Version 1)
Quarter: 2022Q2

REPORT INFORMATION
  Report Type: Spontaneous
  Country: US (occurrence: US)
  Receive Date: 20220512
  Receipt Date: 20220512
  Transmission Date: 20220720
  Serious: No
  Sender: FDA-Public Use
  Company Number: US-PFIZER INC-2021691192

PATIENT
  Age: 63 Year
  Sex: Female

DRUGS (2)
  1. EUCRISA [Suspect]
     Active Substance: CRISABOROLE
     Indication: Rash
     Dosage: 75% APPLY DAILY TO AFFECTED AREAS
  2. EUCRISA [Suspect]
     Active Substance: CRISABOROLE
     Dosage: TWICE DAILY TO AFFECTED AREAS

REACTIONS (4)
  - Off label use [Unknown]
  - Off label use [Unknown]
  - Product prescribing error [Unknown]
  - Condition aggravated [Unknown]

NARRATIVE: CASE EVENT DATE: 20220401
